FAERS Safety Report 7467472-X (Version None)
Quarter: 2011Q2

REPORT INFORMATION
  Report Type: 
  Country: None (occurrence: None)
  Receive Date: 20110509
  Receipt Date: 20110506
  Transmission Date: 20111010
  Serious: Yes (Other)
  Sender: FDA-Public Use
  Company Number: US-PFIZER INC-2011098079

PATIENT
  Sex: Male
  Weight: 70 kg

DRUGS (5)
  1. LIPITOR [Suspect]
     Indication: BLOOD CHOLESTEROL INCREASED
     Dosage: 20 MG, 1X/DAY
     Route: 048
     Dates: start: 20100501
  2. VITAMIN B-12 [Concomitant]
     Dosage: 1000 UG, 1X/DAY
     Route: 048
  3. ASPIRIN [Concomitant]
     Indication: CARDIAC DISORDER
     Dosage: 162 MG, 2X/DAY
     Route: 048
     Dates: start: 20100101
  4. FOLIC ACID [Concomitant]
     Dosage: 800 MG, 1X/DAY
     Route: 048
  5. LISINOPRIL [Concomitant]
     Indication: HYPERTENSION
     Dosage: 10 MG, 1X/DAY
     Route: 048
     Dates: start: 20100101

REACTIONS (2)
  - CONVULSION [None]
  - BACK PAIN [None]
